FAERS Safety Report 8435061-6 (Version None)
Quarter: 2012Q2

REPORT INFORMATION
  Report Type: 
  Country: None (occurrence: None)
  Receive Date: 20120614
  Receipt Date: 20120606
  Transmission Date: 20120825
  Serious: Yes (Other)
  Sender: FDA-Public Use
  Company Number: PHHY2012BR050020

PATIENT
  Sex: Female
  Weight: 69 kg

DRUGS (3)
  1. DIOVAN HCT [Suspect]
     Dosage: 0.5 TABLETS DAILY
     Dates: end: 20120501
  2. CIPROFIBRATE [Concomitant]
     Dosage: 1 TABLET DAILY
  3. DIOVAN HCT [Suspect]
     Indication: HYPERTENSION
     Dosage: 1 TABLETS DAILY
     Dates: end: 20120501

REACTIONS (9)
  - BLOOD PRESSURE INADEQUATELY CONTROLLED [None]
  - PAIN IN EXTREMITY [None]
  - ABDOMINAL DISCOMFORT [None]
  - DRUG HYPERSENSITIVITY [None]
  - HYPOAESTHESIA [None]
  - FIBROMYALGIA [None]
  - SCIATIC NERVE INJURY [None]
  - BLOOD TRIGLYCERIDES INCREASED [None]
  - WRONG TECHNIQUE IN DRUG USAGE PROCESS [None]
